FAERS Safety Report 8780394 (Version 1)
Quarter: 2012Q4

REPORT INFORMATION
  Report Type: Spontaneous
  Country: US (occurrence: None)
  Receive Date: 20120905
  Receipt Date: 20120905
  Transmission Date: 20130627
  Serious: Yes (Hospitalization)
  Sender: FDA-Public Use
  Company Number: None

PATIENT
  Age: 73 Year
  Sex: Male
  Weight: 84.4 kg

DRUGS (2)
  1. REMERON [Suspect]
     Indication: DEPRESSION
     Route: 048
     Dates: start: 20120809, end: 20120829
  2. CELEXA [Suspect]
     Route: 048
     Dates: start: 20080801, end: 20120829

REACTIONS (2)
  - Serotonin syndrome [None]
  - Pneumonia aspiration [None]
